FAERS Safety Report 16108030 (Version 3)
Quarter: 2019Q2

REPORT INFORMATION
  Report Type: Report from Study
  Country: EG (occurrence: EG)
  Receive Date: 20190322
  Receipt Date: 20190509
  Transmission Date: 20190711
  Serious: Yes (Death, Hospitalization, Other)
  Sender: FDA-Public Use
  Company Number: EG-SEATTLE GENETICS-2019SGN00819

PATIENT
  Sex: Male

DRUGS (1)
  1. BRENTUXIMAB VEDOTIN-MPI [Suspect]
     Active Substance: BRENTUXIMAB VEDOTIN
     Indication: HODGKIN^S DISEASE
     Dosage: UNK, Q21D
     Route: 042
     Dates: start: 20181119, end: 20190225

REACTIONS (5)
  - White blood cell count decreased [Unknown]
  - Lower respiratory tract infection [Fatal]
  - Acute respiratory distress syndrome [Fatal]
  - Leukopenia [Fatal]
  - Neutropenia [Fatal]
